FAERS Safety Report 6693860-5 (Version None)
Quarter: 2010Q2

REPORT INFORMATION
  Report Type: 
  Country: None (occurrence: None)
  Receive Date: 20100423
  Receipt Date: 20100413
  Transmission Date: 20101027
  Serious: Yes (Hospitalization)
  Sender: FDA-Public Use
  Company Number: PHHO2010US05456

PATIENT
  Sex: Female

DRUGS (33)
  1. AFINITOR [Suspect]
     Indication: METASTATIC MALIGNANT MELANOMA
     Dosage: UNK
     Route: 048
     Dates: start: 20100225, end: 20100401
  2. PACLITAXEL COMP-PAC+ [Suspect]
     Indication: METASTATIC MALIGNANT MELANOMA
     Dosage: UNK
     Dates: start: 20100225, end: 20100401
  3. CARBOPLATIN COMP-CAB+ [Suspect]
     Indication: METASTATIC MALIGNANT MELANOMA
     Dosage: UNK
     Dates: start: 20100225, end: 20100401
  4. ANTIBIOTICS [Suspect]
  5. OMEPRAZOLE [Concomitant]
     Indication: GASTROOESOPHAGEAL REFLUX DISEASE
     Dosage: UNK
  6. APRESOLINE [Concomitant]
  7. MAXEPA [Concomitant]
  8. ASPIRIN [Concomitant]
  9. PRILOSEC [Concomitant]
  10. THERAGRAN-M [Concomitant]
  11. VITAMIN D [Concomitant]
  12. VITAMIN C [Concomitant]
  13. NORVASC [Concomitant]
  14. TENORMIN [Concomitant]
  15. CORDARONE [Concomitant]
  16. ZYLOPRIM [Concomitant]
  17. FOSAMAX [Concomitant]
  18. SONATA [Concomitant]
  19. VICODIN [Concomitant]
  20. HYDROCORT [Concomitant]
  21. NYSTATIN [Concomitant]
  22. TETRACYCLINE [Concomitant]
  23. MIRALAX [Concomitant]
  24. MEGACE [Concomitant]
  25. FUROSEMIDE [Concomitant]
  26. ATENOLOL [Concomitant]
  27. POTASSIUM CHLORIDE [Concomitant]
  28. COUMADIN [Concomitant]
  29. ASPIRIN [Concomitant]
  30. MULTI-VITAMINS [Concomitant]
  31. PERCOCET [Concomitant]
  32. DILAUDID [Concomitant]
  33. LASIX [Concomitant]

REACTIONS (11)
  - ANAEMIA [None]
  - COAGULOPATHY [None]
  - FAILURE TO THRIVE [None]
  - INTERNATIONAL NORMALISED RATIO INCREASED [None]
  - MALIGNANT NEOPLASM PROGRESSION [None]
  - MALNUTRITION [None]
  - PERFORMANCE STATUS DECREASED [None]
  - RENAL FAILURE ACUTE [None]
  - SKIN DISORDER [None]
  - THROMBOCYTOPENIA [None]
  - WEIGHT DECREASED [None]
